FAERS Safety Report 6147413-8 (Version None)
Quarter: 2009Q2

REPORT INFORMATION
  Report Type: 
  Country: None (occurrence: None)
  Receive Date: 20090408
  Receipt Date: 20090403
  Transmission Date: 20091009
  Serious: Yes (Hospitalization, Other)
  Sender: FDA-Public Use
  Company Number: US-ASTRAZENECA-2009UW08511

PATIENT
  Age: 63 Year
  Sex: Female

DRUGS (1)
  1. NEXIUM [Suspect]
     Route: 048
     Dates: start: 20060803

REACTIONS (5)
  - BLOOD GLUCOSE DECREASED [None]
  - CONTUSION [None]
  - MELAENA [None]
  - PAIN [None]
  - ROAD TRAFFIC ACCIDENT [None]
